FAERS Safety Report 5121273-6 (Version None)
Quarter: 2006Q4

REPORT INFORMATION
  Report Type: 
  Country: None (occurrence: None)
  Receive Date: 20061002
  Receipt Date: 20060914
  Transmission Date: 20070319
  Serious: Yes (Life-Threatening, Hospitalization)
  Sender: FDA-Public Use
  Company Number: PAR_0189_2005

PATIENT
  Age: 56 Year
  Sex: Female
  Weight: 97.5234 kg

DRUGS (1)
  1. ALLOPURINOL [Suspect]
     Indication: GOUT
     Dosage: 300 MG QDAY PO
     Route: 048
     Dates: start: 20050321, end: 20050422

REACTIONS (4)
  - HYPOTRICHOSIS [None]
  - ONYCHOMADESIS [None]
  - RENAL DISORDER [None]
  - STEVENS-JOHNSON SYNDROME [None]
